FAERS Safety Report 11090650 (Version 1)
Quarter: 2015Q2

REPORT INFORMATION
  Report Type: Spontaneous
  Country: US (occurrence: US)
  Receive Date: 20150505
  Receipt Date: 20150505
  Transmission Date: 20150821
  Serious: Yes (Hospitalization)
  Sender: FDA-Public Use
  Company Number: US-ASTRAZENECA-2015SE40132

PATIENT
  Sex: Female

DRUGS (7)
  1. PRILOSEC [Suspect]
     Active Substance: OMEPRAZOLE MAGNESIUM
     Route: 048
  2. TOPROL XL [Suspect]
     Active Substance: METOPROLOL SUCCINATE
     Route: 048
  3. TOPROL XL [Suspect]
     Active Substance: METOPROLOL SUCCINATE
     Dosage: GENERIC
     Route: 065
  4. MULTIVITAMIN [Concomitant]
     Active Substance: VITAMINS
  5. NEXIUM [Suspect]
     Active Substance: ESOMEPRAZOLE MAGNESIUM
     Indication: GASTROOESOPHAGEAL REFLUX DISEASE
     Dosage: 40 TO 80 MG
     Route: 048
  6. NEXIUM [Suspect]
     Active Substance: ESOMEPRAZOLE MAGNESIUM
     Route: 048
  7. TOPROL XL [Suspect]
     Active Substance: METOPROLOL SUCCINATE
     Route: 048

REACTIONS (10)
  - Supraventricular extrasystoles [Recovered/Resolved]
  - Mitral valve prolapse [Unknown]
  - Adverse event [Unknown]
  - Supraventricular tachycardia [Recovered/Resolved]
  - Barrett^s oesophagus [Unknown]
  - Off label use [Unknown]
  - Intentional product misuse [Unknown]
  - Irritable bowel syndrome [Unknown]
  - Gallbladder disorder [Unknown]
  - Gastrooesophageal reflux disease [Unknown]
